FAERS Safety Report 15017987 (Version 2)
Quarter: 2018Q3

REPORT INFORMATION
  Report Type: Spontaneous
  Country: IT (occurrence: IT)
  Receive Date: 20180615
  Receipt Date: 20180709
  Transmission Date: 20181010
  Serious: Yes (Hospitalization)
  Sender: FDA-Public Use
  Company Number: IT-COLLEGIUM PHARMACEUTICAL, INC.-IT-2018DEP000894

PATIENT
  Age: 46 Year
  Sex: Male

DRUGS (2)
  1. OKI [Concomitant]
     Active Substance: KETOPROFEN LYSINE
     Indication: PRODUCT USED FOR UNKNOWN INDICATION
     Dosage: UNK, PRN
  2. TAPENTADOL HYDROCHLORIDE [Suspect]
     Active Substance: TAPENTADOL HYDROCHLORIDE
     Indication: MUSCULOSKELETAL PAIN
     Dosage: 50 MG, QD
     Route: 048
     Dates: start: 20171220, end: 2018

REACTIONS (4)
  - Pleurisy [Unknown]
  - Underdose [Unknown]
  - Pneumonia [Unknown]
  - Opiates positive [Unknown]

NARRATIVE: CASE EVENT DATE: 20180321
